FAERS Safety Report 19948680 (Version 1)
Quarter: 2021Q4

REPORT INFORMATION
  Report Type: Spontaneous
  Country: None (occurrence: US)
  Receive Date: 20211012
  Receipt Date: 20211012
  Transmission Date: 20220303
  Serious: Yes (Other)
  Sender: FDA-Public Use
  Company Number: US-ACELLA PHARMACEUTICALS, LLC-2120481

PATIENT
  Age: 35 Year
  Sex: Male

DRUGS (2)
  1. PHENYTOIN SODIUM [Suspect]
     Active Substance: PHENYTOIN SODIUM
     Route: 065
  2. DIVALPROEX SODIUM [Concomitant]
     Active Substance: DIVALPROEX SODIUM
     Route: 065

REACTIONS (12)
  - Pneumonia [Unknown]
  - Pyrexia [Unknown]
  - Cough [Unknown]
  - Productive cough [Unknown]
  - Dyspnoea [Unknown]
  - Odynophagia [Unknown]
  - Nausea [Unknown]
  - Abdominal pain [Unknown]
  - Diarrhoea [Unknown]
  - Lung opacity [Unknown]
  - Bronchiectasis [Recovered/Resolved]
  - Pulmonary fibrosis [Recovered/Resolved]
